FAERS Safety Report 5141951-2 (Version None)
Quarter: 2006Q4

REPORT INFORMATION
  Report Type: 
  Country: None (occurrence: None)
  Receive Date: 20061102
  Receipt Date: 20061018
  Transmission Date: 20070319
  Serious: Yes (Other)
  Sender: FDA-Public Use
  Company Number: PHBS2006AT16298

PATIENT
  Age: 9 Year

DRUGS (1)
  1. FAMVIR [Suspect]
     Dosage: 125 MG, QID

REACTIONS (1)
  - CONVULSION [None]
